FAERS Safety Report 16718478 (Version 1)
Quarter: 2020Q3

REPORT INFORMATION
  Report Type: Spontaneous
  Country: CA (occurrence: CA)
  Receive Date: 20190820
  Receipt Date: 20190820
  Transmission Date: 20201104
  Serious: Yes (Other)
  Sender: FDA-Public Use
  Company Number: CA-ROCHE-2383010

PATIENT
  Sex: Female

DRUGS (2)
  1. ALECTINIB. [Suspect]
     Active Substance: ALECTINIB
     Indication: PRODUCT USED FOR UNKNOWN INDICATION
     Route: 065
  2. LORBRENA [Suspect]
     Active Substance: LORLATINIB
     Indication: PRODUCT USED FOR UNKNOWN INDICATION
     Dosage: ONCE A DAY X 1 WEEK THEN INCREASE TO 100 MG PO
     Route: 048

REACTIONS (1)
  - Metastases to central nervous system [Unknown]
